FAERS Safety Report 6373161-5 (Version None)
Quarter: 2009Q3

REPORT INFORMATION
  Report Type: 
  Country: None (occurrence: None)
  Receive Date: 20090924
  Receipt Date: 20090108
  Transmission Date: 20100115
  Serious: Yes (Other)
  Sender: FDA-Public Use
  Company Number: US-ASTRAZENECA-2009UW00879

PATIENT
  Age: 39 Year
  Sex: Female

DRUGS (5)
  1. SEROQUEL [Suspect]
     Dosage: TITRATED TO 300 MG
     Route: 048
  2. SEROQUEL [Suspect]
     Route: 048
  3. SEROQUEL [Suspect]
     Route: 048
  4. VALIUM [Concomitant]
  5. GEODON [Concomitant]

REACTIONS (2)
  - IRRITABILITY [None]
  - SUICIDAL IDEATION [None]
